FAERS Safety Report 20210731 (Version 1)
Quarter: 2021Q4

REPORT INFORMATION
  Report Type: Report from Study
  Country: CA (occurrence: CA)
  Receive Date: 20211221
  Receipt Date: 20211221
  Transmission Date: 20220303
  Serious: Yes (Other)
  Sender: FDA-Public Use
  Company Number: CA-JNJFOC-20211235740

PATIENT
  Age: 62 Year
  Sex: Male

DRUGS (1)
  1. REMICADE [Suspect]
     Active Substance: INFLIXIMAB
     Indication: Product used for unknown indication
     Dosage: LAST INFUSION RECEIVED DATE: 22-OCT-2021
     Route: 042

REACTIONS (2)
  - Basal cell carcinoma [Unknown]
  - Procedural pain [Unknown]

NARRATIVE: CASE EVENT DATE: 20211201
